FAERS Safety Report 9174190 (Version 1)
Quarter: 2013Q1

REPORT INFORMATION
  Report Type: Spontaneous
  Country: IT (occurrence: None)
  Receive Date: 20130315
  Receipt Date: 20130315
  Transmission Date: 20140127
  Serious: Yes (Hospitalization)
  Sender: FDA-Public Use
  Company Number: 2013-04003

PATIENT
  Age: 42 Year
  Sex: Female

DRUGS (4)
  1. OXALIPLATIN [Suspect]
     Indication: RECTAL ADENOCARCINOMA
     Dosage: 80 MG/SQ. METER, INTRAVENOUS
     Route: 042
     Dates: start: 20130213, end: 20130213
  2. IRINOTECAN (IRINOTECAN) [Concomitant]
  3. BEVACIZUMAB (BEVACIZUMAB) [Concomitant]
  4. FLUOROURACIL (FLUOROURACIL) [Concomitant]

REACTIONS (10)
  - Abdominal pain upper [None]
  - Feeling hot [None]
  - Rash [None]
  - Pruritus [None]
  - Erythema [None]
  - Urticaria [None]
  - Blood lactate dehydrogenase increased [None]
  - Infusion related reaction [None]
  - Troponin increased [None]
  - Heart rate increased [None]
